FAERS Safety Report 11106413 (Version 1)
Quarter: 2015Q2

REPORT INFORMATION
  Report Type: Spontaneous
  Country: US (occurrence: US)
  Receive Date: 20150512
  Receipt Date: 20150512
  Transmission Date: 20150821
  Serious: Yes (Hospitalization, Other)
  Sender: FDA-Public Use
  Company Number: US-AMGEN-USASP2015044477

PATIENT
  Age: 86 Year
  Sex: Female

DRUGS (1)
  1. PROLIA [Suspect]
     Active Substance: DENOSUMAB
     Indication: PRODUCT USED FOR UNKNOWN INDICATION
     Dosage: UNK
     Route: 065

REACTIONS (6)
  - Blood albumin decreased [Unknown]
  - Gastrointestinal viral infection [Unknown]
  - Blood potassium decreased [Unknown]
  - Blood calcium abnormal [Unknown]
  - Blood creatinine abnormal [Unknown]
  - Dementia [Unknown]

NARRATIVE: CASE EVENT DATE: 20150424
